FAERS Safety Report 25015389 (Version 1)
Quarter: 2025Q1

REPORT INFORMATION
  Report Type: Spontaneous
  Country: CN (occurrence: CN)
  Receive Date: 20250226
  Receipt Date: 20250226
  Transmission Date: 20250408
  Serious: Yes (Other)
  Sender: ROCHE
  Company Number: CN-ROCHE-10000217321

PATIENT
  Age: 26 Year
  Sex: Male
  Weight: 82 kg

DRUGS (6)
  1. RITUXIMAB [Suspect]
     Active Substance: RITUXIMAB
     Indication: Burkitt^s lymphoma
     Route: 042
     Dates: start: 20250115, end: 20250115
  2. METHOTREXATE [Concomitant]
     Active Substance: METHOTREXATE
  3. CYTARABINE [Concomitant]
     Active Substance: CYTARABINE
  4. GRANULOCYTE COLONY-STIMULATING FACTOR NOS [Concomitant]
     Active Substance: GRANULOCYTE COLONY-STIMULATING FACTOR NOS
  5. TRANEXAMIC ACID [Concomitant]
     Active Substance: TRANEXAMIC ACID
  6. ETHAMSYLATE [Concomitant]
     Active Substance: ETHAMSYLATE

REACTIONS (2)
  - Myelosuppression [Recovering/Resolving]
  - Rash [Unknown]

NARRATIVE: CASE EVENT DATE: 20250201
